FAERS Safety Report 4685313-0 (Version None)
Quarter: 2005Q2

REPORT INFORMATION
  Report Type: 
  Country: None (occurrence: None)
  Receive Date: 20050608
  Receipt Date: 20050601
  Transmission Date: 20051028
  Serious: Yes (Other)
  Sender: FDA-Public Use
  Company Number: PHBS2005BE08040

PATIENT
  Age: 46 Year
  Sex: Female

DRUGS (7)
  1. RITALIN [Suspect]
     Indication: CHRONIC FATIGUE SYNDROME
     Dosage: 5 TAB/WEEK
     Route: 048
     Dates: start: 20050101
  2. RITALIN [Suspect]
     Dosage: 3-4 TAB/D
     Route: 048
  3. FONTEX [Concomitant]
     Dosage: 20 MG, BID
  4. TRAZOLAN [Concomitant]
     Indication: DEPRESSION
     Dosage: 100 MG, QHS
  5. RIVOTRIL [Concomitant]
  6. NOVOTHYRAL [Concomitant]
  7. EFFORTIL [Concomitant]
     Indication: HYPOTENSION
     Dosage: 5 MG, TID

REACTIONS (17)
  - AGITATION [None]
  - COUGH [None]
  - DEPRESSION [None]
  - DIARRHOEA [None]
  - FEELING ABNORMAL [None]
  - FEELING COLD [None]
  - HYPERHIDROSIS [None]
  - HYPERVENTILATION [None]
  - INCREASED APPETITE [None]
  - INCREASED UPPER AIRWAY SECRETION [None]
  - ORAL PAIN [None]
  - ORAL PRURITUS [None]
  - PARAESTHESIA ORAL [None]
  - PHARYNGOLARYNGEAL PAIN [None]
  - PNEUMONIA [None]
  - RHINORRHOEA [None]
  - WEIGHT INCREASED [None]
